FAERS Safety Report 4614272-1 (Version None)
Quarter: 2005Q1

REPORT INFORMATION
  Report Type: 
  Country: None (occurrence: None)
  Receive Date: 20050315
  Receipt Date: 20040329
  Transmission Date: 20050727
  Serious: Yes (Hospitalization)
  Sender: FDA-Public Use
  Company Number: 04-NIP00048

PATIENT
  Age: 16 Year
  Sex: Female
  Weight: 62.2 kg

DRUGS (1)
  1. NIPENT [Suspect]
     Indication: GRAFT VERSUS HOST DISEASE
     Dosage: 4 MG/M2 (Q 2 WK), INTRAVENOUS
     Route: 042
     Dates: start: 20011109

REACTIONS (8)
  - ABDOMINAL PAIN [None]
  - HEPATIC STEATOSIS [None]
  - HIATUS HERNIA [None]
  - NAUSEA [None]
  - OESOPHAGITIS [None]
  - PANCREATIC ATROPHY [None]
  - PANCREATIC INSUFFICIENCY [None]
  - VOMITING [None]
